FAERS Safety Report 17865429 (Version 1)
Quarter: 2020Q2

REPORT INFORMATION
  Report Type: Spontaneous
  Country: US (occurrence: US)
  Receive Date: 20200605
  Receipt Date: 20200605
  Transmission Date: 20200714
  Serious: Yes (Other)
  Sender: FDA-Public Use
  Company Number: US-BAUSCH-BL-2020-015758

PATIENT
  Age: 89 Year
  Sex: Male

DRUGS (7)
  1. PREDNISOLONE ACETATE. [Suspect]
     Active Substance: PREDNISOLONE ACETATE
     Indication: OCULAR SURFACE SQUAMOUS NEOPLASIA
     Dosage: WEEKLY 4,3,2,1 PREDNISOLONE ACETATE 1 PERCENT TAPER.
     Route: 065
  2. VIGAMOX [Concomitant]
     Active Substance: MOXIFLOXACIN HYDROCHLORIDE
     Indication: PRODUCT USED FOR UNKNOWN INDICATION
  3. INTERFERON ALPHA-2B [Suspect]
     Active Substance: INTERFERON ALFA-2B
     Indication: OCULAR SURFACE SQUAMOUS NEOPLASIA
     Dosage: 1 MILLIONUNITS/1ML
     Route: 061
  4. MURO [Concomitant]
     Indication: CORNEAL EROSION
     Dosage: TO THE LEFT EYE
  5. LOTEPREDNOL ETABONATE [Suspect]
     Active Substance: LOTEPREDNOL ETABONATE
     Indication: GLAUCOMA
     Dosage: IN THE LEFT EYE
     Route: 065
  6. LATANOPROST. [Suspect]
     Active Substance: LATANOPROST
     Indication: GLAUCOMA
     Dosage: ONCE AT NIGHT IN THE LEFT EYE
     Route: 065
  7. DORZOLAMIDE [Suspect]
     Active Substance: DORZOLAMIDE
     Indication: GLAUCOMA
     Dosage: ONCE IN THE MORNING IN THE LEFT EYE
     Route: 065

REACTIONS (1)
  - Ulcerative keratitis [Unknown]
